FAERS Safety Report 11895349 (Version 6)
Quarter: 2016Q1

REPORT INFORMATION
  Report Type: Spontaneous
  Country: US (occurrence: US)
  Receive Date: 20160107
  Receipt Date: 20160303
  Transmission Date: 20160526
  Serious: Yes (Hospitalization, Other)
  Sender: FDA-Public Use
  Company Number: US-009507513-1108USA00964

PATIENT
  Sex: Female
  Weight: 92.52 kg

DRUGS (3)
  1. FOSAMAX [Suspect]
     Active Substance: ALENDRONATE SODIUM
     Dosage: 70 MG, QW
     Route: 048
     Dates: start: 20010410, end: 20071224
  2. ACTONEL [Suspect]
     Active Substance: RISEDRONATE SODIUM
     Indication: OSTEOPOROSIS
     Dosage: 35 MG, UNKNOWN
     Route: 048
     Dates: start: 20080219, end: 200911
  3. FOSAMAX [Suspect]
     Active Substance: ALENDRONATE SODIUM
     Indication: OSTEOPOROSIS
     Dosage: 10 MG, QD
     Route: 048
     Dates: start: 20000126, end: 20000526

REACTIONS (28)
  - Wrist fracture [Unknown]
  - Femur fracture [Recovered/Resolved]
  - Ankle fracture [Unknown]
  - Pain [Unknown]
  - Foot fracture [Unknown]
  - Fall [Unknown]
  - Type 1 diabetes mellitus [Unknown]
  - Osteoarthritis [Unknown]
  - Ligament sprain [Unknown]
  - Osteoarthritis [Unknown]
  - Breast disorder female [Unknown]
  - Pain in extremity [Unknown]
  - Hypothyroidism [Unknown]
  - Headache [Unknown]
  - Carpal tunnel syndrome [Unknown]
  - Arthritis [Unknown]
  - Foot fracture [Unknown]
  - Gallbladder disorder [Unknown]
  - Hypertension [Unknown]
  - Fibromyalgia [Unknown]
  - Femur fracture [Recovering/Resolving]
  - Patella fracture [Recovering/Resolving]
  - Pyrexia [Recovered/Resolved]
  - Stress fracture [Unknown]
  - Ankle fracture [Unknown]
  - Foot fracture [Unknown]
  - Depression [Recovered/Resolved]
  - Anxiety [Recovered/Resolved]

NARRATIVE: CASE EVENT DATE: 200701
